FAERS Safety Report 8314759-4 (Version None)
Quarter: 2012Q2

REPORT INFORMATION
  Report Type: 
  Country: None (occurrence: None)
  Receive Date: 20120426
  Receipt Date: 20120417
  Transmission Date: 20120825
  Serious: Yes (Other)
  Sender: FDA-Public Use
  Company Number: CR-ELI_LILLY_AND_COMPANY-CR201204008190

PATIENT
  Sex: Male

DRUGS (2)
  1. EXENATIDE [Suspect]
     Dosage: 10 UG, BID
     Route: 058
     Dates: start: 20110101, end: 20110101
  2. EXENATIDE [Suspect]
     Indication: DIABETES MELLITUS
     Dosage: 5 UG, BID
     Route: 058
     Dates: start: 20110101, end: 20110101

REACTIONS (3)
  - HEPATIC MASS [None]
  - WEIGHT DECREASED [None]
  - HEPATIC NEOPLASM MALIGNANT [None]
